FAERS Safety Report 21383156 (Version 1)
Quarter: 2022Q3

REPORT INFORMATION
  Report Type: Spontaneous
  Country: US (occurrence: US)
  Receive Date: 20220927
  Receipt Date: 20220927
  Transmission Date: 20221026
  Serious: No
  Sender: FDA-Public Use
  Company Number: US-SANOFI-01290516

PATIENT
  Sex: Male

DRUGS (1)
  1. ADLYXIN [Suspect]
     Active Substance: LIXISENATIDE
     Indication: Type 2 diabetes mellitus
     Dosage: 20 UG, QD

REACTIONS (1)
  - Wrong technique in product usage process [Unknown]
